FAERS Safety Report 12635757 (Version 3)
Quarter: 2016Q3

REPORT INFORMATION
  Report Type: Spontaneous
  Country: US (occurrence: US)
  Receive Date: 20160809
  Receipt Date: 20160818
  Transmission Date: 20161109
  Serious: No
  Sender: FDA-Public Use
  Company Number: US-PFIZER INC-2016362895

PATIENT
  Age: 71 Year
  Sex: Female
  Weight: 104.3 kg

DRUGS (4)
  1. GABAPENTIN. [Suspect]
     Active Substance: GABAPENTIN
     Indication: DIABETIC COMPLICATION
     Dosage: 400 MG 2- AM, 1-PM
     Dates: start: 2011
  2. GABAPENTIN. [Suspect]
     Active Substance: GABAPENTIN
     Dosage: 400 MG 2 AM, 2 PM
     Dates: start: 2014
  3. GABAPENTIN. [Suspect]
     Active Substance: GABAPENTIN
     Dosage: 400 MG 2 AM, 1 NOON, 2 PM
     Dates: start: 2015
  4. GABAPENTIN. [Suspect]
     Active Substance: GABAPENTIN
     Dosage: 300MG CAPSULES, 1 CAPSULE IN THE MORNING, 1 AT 12PM, AND 3 AT NIGHT

REACTIONS (1)
  - Drug ineffective for unapproved indication [Not Recovered/Not Resolved]

NARRATIVE: CASE EVENT DATE: 2011
